FAERS Safety Report 9522739 (Version 1)
Quarter: 2013Q3

REPORT INFORMATION
  Report Type: Spontaneous
  Country: FR (occurrence: FR)
  Receive Date: 20130913
  Receipt Date: 20130913
  Transmission Date: 20140515
  Serious: Yes (Death, Other)
  Sender: FDA-Public Use
  Company Number: FR-JNJFOC-20130903042

PATIENT
  Age: 74 Year
  Sex: Female

DRUGS (5)
  1. HALDOL [Suspect]
     Indication: PSYCHOTIC DISORDER
     Route: 048
     Dates: end: 20130723
  2. LOXAPAC [Suspect]
     Indication: PSYCHOTIC DISORDER
     Dosage: 200 GTT PER DAY (50 GTT IN MORNING AND IN MIDDAY AND 100 GTT IN EVENING)
     Route: 048
     Dates: end: 20130723
  3. THERALENE [Suspect]
     Indication: INSOMNIA
     Route: 048
     Dates: end: 20130723
  4. MOVICOL [Concomitant]
     Route: 048
  5. LANTUS [Concomitant]
     Route: 058
     Dates: end: 20130723

REACTIONS (4)
  - Dysphagia [Fatal]
  - Overdose [Unknown]
  - Pneumonia aspiration [Fatal]
  - Vomiting [Unknown]
